FAERS Safety Report 13780812 (Version 1)
Quarter: 2017Q3

REPORT INFORMATION
  Report Type: Spontaneous
  Country: US (occurrence: US)
  Receive Date: 20170721
  Receipt Date: 20170721
  Transmission Date: 20171127
  Serious: Yes (Hospitalization)
  Sender: FDA-Public Use
  Company Number: None

PATIENT
  Age: 75 Year
  Sex: Female

DRUGS (2)
  1. FASLODEX [Concomitant]
     Active Substance: FULVESTRANT
  2. IBRANCE [Suspect]
     Active Substance: PALBOCICLIB
     Indication: BREAST CANCER METASTATIC
     Dosage: ?          OTHER DOSE:MG;?
     Route: 048
     Dates: start: 20170609, end: 20170630

REACTIONS (6)
  - Pain [None]
  - Acute kidney injury [None]
  - Disease progression [None]
  - Vomiting [None]
  - Abdominal distension [None]
  - Ascites [None]

NARRATIVE: CASE EVENT DATE: 20170718
